FAERS Safety Report 9187322 (Version 1)
Quarter: 2013Q1

REPORT INFORMATION
  Report Type: Spontaneous
  Country: CO (occurrence: CO)
  Receive Date: 20130325
  Receipt Date: 20130325
  Transmission Date: 20140127
  Serious: Yes (Other)
  Sender: FDA-Public Use
  Company Number: CO-BAXTER-2013BAX010038

PATIENT
  Age: 42 Year
  Sex: Female
  Weight: 70 kg

DRUGS (1)
  1. SOLUCION RINGER USP [Suspect]
     Indication: FLUID REPLACEMENT
     Dosage: 500 CC
     Dates: start: 20130206, end: 20130206

REACTIONS (2)
  - Infusion site rash [Recovered/Resolved]
  - Infusion site urticaria [Recovered/Resolved]
